FAERS Safety Report 6219481-6 (Version None)
Quarter: 2009Q2

REPORT INFORMATION
  Report Type: 
  Country: None (occurrence: None)
  Receive Date: 20090609
  Receipt Date: 20090604
  Transmission Date: 20091009
  Serious: Yes (Death, Other)
  Sender: FDA-Public Use
  Company Number: PHEH2009US05720

PATIENT
  Age: 78 Year
  Sex: Female

DRUGS (2)
  1. TASIGNA [Suspect]
     Dosage: 200 MG, BID
     Route: 048
  2. COUMADIN [Concomitant]

REACTIONS (2)
  - DEATH [None]
  - MYOCARDIAL INFARCTION [None]
